FAERS Safety Report 13506716 (Version 1)
Quarter: 2017Q2

REPORT INFORMATION
  Report Type: Spontaneous
  Country: US (occurrence: US)
  Receive Date: 20170502
  Receipt Date: 20170502
  Transmission Date: 20170830
  Serious: No
  Sender: FDA-Public Use
  Company Number: US-ROCHE-1482821

PATIENT
  Sex: Female
  Weight: 90.8 kg

DRUGS (2)
  1. EYLEA [Suspect]
     Active Substance: AFLIBERCEPT
     Indication: EYE SWELLING
     Route: 050
     Dates: start: 20141015
  2. AVASTIN [Suspect]
     Active Substance: BEVACIZUMAB
     Indication: PRODUCT USED FOR UNKNOWN INDICATION
     Dosage: 7 INJECTIONS IN THE OD
     Route: 065

REACTIONS (2)
  - Visual field defect [Recovered/Resolved]
  - Off label use [Unknown]
